FAERS Safety Report 6897606-7 (Version None)
Quarter: 2010Q3

REPORT INFORMATION
  Report Type: 
  Country: None (occurrence: None)
  Receive Date: 20100802
  Receipt Date: 20071227
  Transmission Date: 20110219
  Serious: Yes (Other)
  Sender: FDA-Public Use
  Company Number: US-PFIZER INC-2007045325

PATIENT
  Sex: Female
  Weight: 54.4 kg

DRUGS (5)
  1. LYRICA [Suspect]
     Indication: FIBROMYALGIA
     Dates: start: 20070501
  2. PROZAC [Concomitant]
  3. LORAZEPAM [Concomitant]
  4. WELLBUTRIN [Concomitant]
  5. AMBIEN [Concomitant]

REACTIONS (1)
  - URTICARIA [None]
